FAERS Safety Report 22209024 (Version 1)
Quarter: 2023Q2

REPORT INFORMATION
  Report Type: Spontaneous
  Country: KR (occurrence: KR)
  Receive Date: 20230413
  Receipt Date: 20230413
  Transmission Date: 20230722
  Serious: Yes (Hospitalization, Other)
  Sender: FDA-Public Use
  Company Number: KR-MYLANLABS-2023M1038207

PATIENT
  Age: 73 Year
  Sex: Female

DRUGS (3)
  1. CELEBREX [Suspect]
     Active Substance: CELECOXIB
     Indication: Spondylolisthesis
     Dosage: 1 DOSAGE FORM, QD
     Route: 065
     Dates: start: 20200131, end: 20200525
  2. GABAPENTIN [Suspect]
     Active Substance: GABAPENTIN
     Indication: Spondylolisthesis
     Dosage: 1 DOSAGE FORM, 0.33 DAY
     Route: 065
     Dates: start: 20200322
  3. ACETAMINOPHEN\TRAMADOL HYDROCHLORIDE [Suspect]
     Active Substance: ACETAMINOPHEN\TRAMADOL HYDROCHLORIDE
     Indication: Spondylolisthesis
     Dosage: 1 DOSAGE FORM, BID
     Route: 065
     Dates: start: 20200428, end: 20200525

REACTIONS (3)
  - Cardiac failure [Recovering/Resolving]
  - Dyspnoea [Recovering/Resolving]
  - Off label use [Unknown]

NARRATIVE: CASE EVENT DATE: 20200131
